FAERS Safety Report 8516821-X (Version None)
Quarter: 2012Q3

REPORT INFORMATION
  Report Type: 
  Country: None (occurrence: None)
  Receive Date: 20120718
  Receipt Date: 20120711
  Transmission Date: 20120928
  Serious: Yes (Hospitalization, Other)
  Sender: FDA-Public Use
  Company Number: US-SANOFI-AVENTIS-2012SA027655

PATIENT
  Age: 58 Year
  Sex: Female
  Weight: 52 kg

DRUGS (12)
  1. PLAVIX [Suspect]
     Indication: STENT PLACEMENT
     Route: 048
     Dates: start: 20040428, end: 20120419
  2. COLCHICINE [Concomitant]
  3. CALCIUM CARBONATE [Concomitant]
  4. CARAFATE [Concomitant]
  5. ROSUVASTATIN [Concomitant]
     Dates: start: 20061122
  6. PLAVIX [Suspect]
     Indication: CORONARY ARTERY DISEASE
     Route: 048
     Dates: start: 20040428, end: 20120419
  7. PROTONIX [Concomitant]
     Dates: start: 20110615
  8. ZANTAC [Concomitant]
     Indication: ULCER
     Dates: start: 20100224
  9. PRILOSEC [Concomitant]
     Dates: end: 20110101
  10. TOPROL-XL [Concomitant]
     Indication: CORONARY ARTERY DISEASE
     Dates: start: 20051026
  11. ASPIRIN [Concomitant]
     Indication: CORONARY ARTERY DISEASE
     Dates: start: 20010601
  12. ASPIRIN [Concomitant]
     Indication: STENT PLACEMENT
     Dates: start: 20010601

REACTIONS (20)
  - ANAEMIA [None]
  - WEIGHT DECREASED [None]
  - VASCULAR OCCLUSION [None]
  - COLITIS [None]
  - GASTRIC ULCER [None]
  - ERUCTATION [None]
  - IRRITABLE BOWEL SYNDROME [None]
  - ABDOMINAL DISTENSION [None]
  - ABDOMINAL PAIN UPPER [None]
  - GASTROOESOPHAGEAL REFLUX DISEASE [None]
  - CONSTIPATION [None]
  - TRANSIENT ISCHAEMIC ATTACK [None]
  - MASS [None]
  - HIATUS HERNIA [None]
  - DIARRHOEA [None]
  - CONDITION AGGRAVATED [None]
  - ASTHENIA [None]
  - GASTRITIS [None]
  - EATING DISORDER [None]
  - CROHN'S DISEASE [None]
